FAERS Safety Report 5693138-2 (Version None)
Quarter: 2008Q2

REPORT INFORMATION
  Report Type: 
  Country: None (occurrence: None)
  Receive Date: 20080402
  Receipt Date: 20080402
  Transmission Date: 20081010
  Serious: Yes (Hospitalization)
  Sender: FDA-Public Use
  Company Number: None

PATIENT
  Age: 49 Year
  Sex: Male
  Weight: 107.9561 kg

DRUGS (2)
  1. PROGRAF [Suspect]
     Indication: IMMUNOSUPPRESSION
     Dosage: 1.5MG BID PO
     Route: 048
     Dates: start: 20071116
  2. MYFORTIC [Suspect]
     Indication: IMMUNOSUPPRESSION
     Dosage: 540MG BID PO
     Route: 048
     Dates: start: 20071116

REACTIONS (5)
  - ABDOMINAL DISCOMFORT [None]
  - BACTERAEMIA [None]
  - CHEST PAIN [None]
  - DIABETIC FOOT [None]
  - DYSPNOEA [None]
